FAERS Safety Report 17416701 (Version 3)
Quarter: 2020Q3

REPORT INFORMATION
  Report Type: Spontaneous
  Country: AU (occurrence: AU)
  Receive Date: 20200214
  Receipt Date: 20200713
  Transmission Date: 20201102
  Serious: Yes (Life-Threatening)
  Sender: FDA-Public Use
  Company Number: AU-MYLANLABS-2020M1017275

PATIENT
  Age: 4 Year
  Sex: Female

DRUGS (1)
  1. EPIPEN JR [Suspect]
     Active Substance: EPINEPHRINE
     Indication: ANAPHYLACTIC REACTION
     Dosage: UNK

REACTIONS (2)
  - Drug ineffective [Unknown]
  - Device malfunction [Unknown]
